FAERS Safety Report 10073887 (Version 2)
Quarter: 2014Q2

REPORT INFORMATION
  Report Type: Report from Study
  Country: IE (occurrence: IE)
  Receive Date: 20140411
  Receipt Date: 20140411
  Transmission Date: 20141212
  Serious: Yes (Hospitalization, Other)
  Sender: FDA-Public Use
  Company Number: US-ASTRAZENECA-2014SE06358

PATIENT
  Age: 454 Day
  Sex: Male
  Weight: 12.5 kg

DRUGS (7)
  1. SYNAGIS [Suspect]
     Indication: MUSCULAR DYSTROPHY
     Route: 030
     Dates: start: 201309
  2. SYNAGIS [Suspect]
     Indication: LOWER RESPIRATORY TRACT INFECTION
     Route: 030
     Dates: start: 201309
  3. SYNAGIS [Suspect]
     Indication: MUSCULAR DYSTROPHY
     Route: 030
  4. SYNAGIS [Suspect]
     Indication: LOWER RESPIRATORY TRACT INFECTION
     Route: 030
  5. MOVICOL [Concomitant]
     Indication: CONSTIPATION
     Route: 048
  6. KLACID [Concomitant]
     Indication: PRODUCT USED FOR UNKNOWN INDICATION
     Route: 048
  7. VITAMIN D [Concomitant]
     Indication: VITAMIN SUPPLEMENTATION
     Route: 048

REACTIONS (7)
  - Viral infection [Recovered/Resolved]
  - Upper respiratory tract infection [Recovered/Resolved]
  - Rhinitis [Recovered/Resolved]
  - Cough [Recovered/Resolved]
  - Secretion discharge [Recovered/Resolved]
  - Vomiting [Recovered/Resolved]
  - Diarrhoea [Recovered/Resolved]
